FAERS Safety Report 10744112 (Version 1)
Quarter: 2015Q1

REPORT INFORMATION
  Report Type: Spontaneous
  Country: GB (occurrence: None)
  Receive Date: 20150123
  Receipt Date: 20150123
  Transmission Date: 20150721
  Serious: No
  Sender: FDA-Public Use
  Company Number: None

PATIENT
  Age: 20 Year
  Sex: Male

DRUGS (2)
  1. COUGH SYRUP COVONIA BRONCHIAL BALSAM SYRUP (DEXTROMETHORPHAN AND MENTHOL) [Suspect]
     Active Substance: DEXTROMETHORPHAN HYDROBROMIDE\MENTHOL
     Indication: COUGH
     Dates: start: 20150118, end: 20150122
  2. COUGH SYRUP COVONIA BRONCHIAL BALSAM SYRUP (DEXTROMETHORPHAN AND MENTHOL) [Suspect]
     Active Substance: DEXTROMETHORPHAN HYDROBROMIDE\MENTHOL
     Indication: DYSPNOEA
     Dates: start: 20150118, end: 20150122

REACTIONS (2)
  - Rash erythematous [None]
  - Incorrect dose administered [None]

NARRATIVE: CASE EVENT DATE: 20150121
